FAERS Safety Report 10503015 (Version 1)
Quarter: 2014Q4

REPORT INFORMATION
  Report Type: Spontaneous
  Country: US (occurrence: US)
  Receive Date: 20141007
  Receipt Date: 20141007
  Transmission Date: 20150528
  Serious: Yes (Other)
  Sender: FDA-Public Use
  Company Number: CHPA2014US013261

PATIENT

DRUGS (1)
  1. KERI LOTION [Suspect]
     Active Substance: LANOLIN\MINERAL OIL
     Indication: PRODUCT USED FOR UNKNOWN INDICATION
     Route: 065

REACTIONS (2)
  - Arterial disorder [Unknown]
  - Cardiac disorder [Unknown]
